FAERS Safety Report 7601497-6 (Version None)
Quarter: 2011Q2

REPORT INFORMATION
  Report Type: 
  Country: None (occurrence: None)
  Receive Date: 20110629
  Receipt Date: 20110512
  Transmission Date: 20111010
  Serious: Yes (Other)
  Sender: FDA-Public Use
  Company Number: 698136

PATIENT
  Age: 18 Year
  Sex: Male
  Weight: 72.6 kg

DRUGS (1)
  1. KLONOPIN [Suspect]
     Indication: CONVULSION
     Dosage: 1.5 MG DAILY, ORAL
     Route: 048

REACTIONS (2)
  - CONVULSION [None]
  - THERAPEUTIC RESPONSE DECREASED [None]
